FAERS Safety Report 9856676 (Version 1)
Quarter: 2014Q1

REPORT INFORMATION
  Report Type: Spontaneous
  Country: RU (occurrence: None)
  Receive Date: 20140127
  Receipt Date: 20140127
  Transmission Date: 20141002
  Serious: Yes (Other)
  Sender: FDA-Public Use
  Company Number: 7260362

PATIENT
  Age: 58 Year
  Sex: Female

DRUGS (1)
  1. EUTHYROX 125 (LEVOTHYROXINE SODIUM) (TABLET) (LEVOTHYROXINE SODIUM),151276 [Suspect]
     Indication: HYPOTHYROIDISM
     Dosage: 1/2 TABLET
     Route: 048
     Dates: start: 201312

REACTIONS (4)
  - Blood thyroid stimulating hormone increased [None]
  - Drug ineffective [None]
  - Product counterfeit [None]
  - Maternal exposure during pregnancy [None]
